FAERS Safety Report 8249169 (Version 5)
Quarter: 2013Q4

REPORT INFORMATION
  Report Type: Report from Study
  Country: JP (occurrence: JP)
  Receive Date: 20111117
  Receipt Date: 20131204
  Transmission Date: 20140711
  Serious: Yes (Other)
  Sender: FDA-Public Use
  Company Number: JP-TEVA-309088USA

PATIENT
  Age: 27 Year
  Sex: Male

DRUGS (16)
  1. ZINC ACETATE 25 MG AND 50 MG CAPSULES [Suspect]
     Indication: HEPATO-LENTICULAR DEGENERATION
     Dosage: 150 MILLIGRAM DAILY;
     Route: 048
     Dates: start: 20101003
  2. MUCOSTA [Concomitant]
     Dosage: 300 MILLIGRAM DAILY;
     Route: 048
     Dates: start: 20080403
  3. DANTRIUM [Concomitant]
     Dosage: 75 MILLIGRAM DAILY;
     Route: 048
     Dates: start: 20080403
  4. GASTER [Concomitant]
     Dosage: 2 GRAM DAILY;
     Route: 048
     Dates: start: 20080403
  5. PORTOLAC [Concomitant]
     Dosage: 36 GRAM DAILY;
     Route: 048
     Dates: start: 20080403
  6. LOXONIN [Concomitant]
     Route: 048
     Dates: start: 20080403
  7. MADOPAR [Concomitant]
     Route: 048
     Dates: start: 20080403
  8. REQUIP [Concomitant]
     Dosage: 8 MILLIGRAM DAILY;
     Route: 048
     Dates: start: 20080403
  9. ARTANE [Concomitant]
     Dosage: 8 MILLIGRAM DAILY;
     Route: 048
     Dates: start: 20080403
  10. SYMMETREL [Concomitant]
     Dosage: 150 MILLIGRAM DAILY;
     Route: 048
     Dates: start: 20080403
  11. SERENACE [Concomitant]
     Dosage: 18 MILLIGRAM DAILY;
     Route: 048
     Dates: start: 20080403
  12. AKINETON [Concomitant]
     Dosage: 6 MILLIGRAM DAILY;
     Route: 048
     Dates: start: 20080403
  13. TEGRETOL [Concomitant]
     Dosage: 400 MILLIGRAM DAILY;
     Route: 048
     Dates: start: 20080403
  14. SEROQUEL [Concomitant]
     Dosage: 100 MILLIGRAM DAILY;
     Route: 048
     Dates: start: 20080403
  15. FOLIAMIN [Concomitant]
     Dosage: 15 MILLIGRAM DAILY;
     Route: 048
     Dates: start: 20111014
  16. METHYCOBAL [Concomitant]
     Dosage: 1500 G/DAY
     Route: 048
     Dates: start: 20111014

REACTIONS (1)
  - Myelodysplastic syndrome [Unknown]
